FAERS Safety Report 10062960 (Version 1)
Quarter: 2014Q2

REPORT INFORMATION
  Report Type: Spontaneous
  Country: US (occurrence: US)
  Receive Date: 20140407
  Receipt Date: 20140407
  Transmission Date: 20141212
  Serious: No
  Sender: FDA-Public Use
  Company Number: US-BAYER-2014-050403

PATIENT
  Age: 63 Year
  Sex: Female

DRUGS (2)
  1. ALEVE CAPLET [Suspect]
  2. IBUPROFEN [Suspect]

REACTIONS (1)
  - Headache [None]
